FAERS Safety Report 6212747-5 (Version None)
Quarter: 2009Q2

REPORT INFORMATION
  Report Type: 
  Country: None (occurrence: None)
  Receive Date: 20090603
  Receipt Date: 20090527
  Transmission Date: 20091009
  Serious: Yes (Other)
  Sender: FDA-Public Use
  Company Number: JP-BRISTOL-MYERS SQUIBB COMPANY-14642557

PATIENT
  Age: 79 Year
  Sex: Male
  Weight: 59 kg

DRUGS (10)
  1. ERBITUX [Suspect]
     Indication: COLON CANCER
     Dosage: (250 MG/M2) 25NOV08-24FEB09;RECENT INFUSION + 15TH INF (24FEB09) (200MG/M2) 17MAR09-
     Route: 042
     Dates: start: 20081120, end: 20081120
  2. IRINOTECAN HCL [Concomitant]
     Indication: COLON CANCER
     Dosage: 20NOV08-20NOV08(120MG/M2) 02DEC08-02DEC08(90MG/M2) 16DEC08-(60MG/M2)
     Route: 042
     Dates: start: 20081111
  3. DIPHENHYDRAMINE HCL [Concomitant]
     Indication: PREMEDICATION
     Route: 048
     Dates: start: 20081120
  4. DECADRON [Concomitant]
     Indication: PREMEDICATION
     Route: 042
     Dates: start: 20081120
  5. KYTRIL [Concomitant]
     Indication: ANTIEMETIC SUPPORTIVE CARE
     Route: 042
     Dates: start: 20081120
  6. NEU-UP [Concomitant]
     Route: 058
     Dates: start: 20081118, end: 20081123
  7. SIMVASTATIN [Concomitant]
     Route: 048
  8. ALOSITOL [Concomitant]
     Route: 048
  9. FERROMIA [Concomitant]
     Route: 048
  10. ENSURE [Concomitant]
     Route: 048

REACTIONS (1)
  - ANOREXIA [None]
